FAERS Safety Report 8595814-0 (Version None)
Quarter: 2012Q3

REPORT INFORMATION
  Report Type: 
  Country: None (occurrence: None)
  Receive Date: 20120815
  Receipt Date: 19900625
  Transmission Date: 20120928
  Serious: Yes (Death, Other)
  Sender: FDA-Public Use
  Company Number: US-ROCHE-1098673

PATIENT
  Sex: Female

DRUGS (6)
  1. HEPARIN [Concomitant]
  2. LASIX [Concomitant]
     Route: 042
  3. ACTIVASE [Suspect]
     Indication: MYOCARDIAL INFARCTION
  4. LIDOCAINE [Concomitant]
  5. DOPAMINE HCL [Concomitant]
  6. DOBUTREX [Concomitant]

REACTIONS (8)
  - BRADYCARDIA [None]
  - OEDEMA [None]
  - CARDIOGENIC SHOCK [None]
  - TACHYCARDIA [None]
  - HYPOXIA [None]
  - GENERAL PHYSICAL HEALTH DETERIORATION [None]
  - HYPERTENSION [None]
  - DEATH [None]
